FAERS Safety Report 4775573-X (Version None)
Quarter: 2005Q3

REPORT INFORMATION
  Report Type: 
  Country: None (occurrence: None)
  Receive Date: 20050914
  Receipt Date: 20041201
  Transmission Date: 20060218
  Serious: Yes (Hospitalization)
  Sender: FDA-Public Use
  Company Number: 163-20785-04120044

PATIENT
  Age: 73 Year
  Sex: Male
  Weight: 135.1 kg

DRUGS (4)
  1. THALOMID [Suspect]
     Indication: NON-SMALL CELL LUNG CANCER
     Dosage: 100 MG, DAILY X 21 DAYS, ORAL
     Route: 048
     Dates: start: 20040512, end: 20040901
  2. PACLITAXEL [Suspect]
     Indication: NON-SMALL CELL LUNG CANCER
     Dosage: 225 MG/M2 IV OVER 3 HRS ON DAY 1 EVERY 21 DAYS X 2
     Dates: start: 20040512, end: 20040802
  3. CARBOPLATIN [Suspect]
     Indication: NON-SMALL CELL LUNG CANCER
     Dosage: AUC=6 IV OVER 15-30 MIN ON DAY 1 EVERY 21 DAYS X 2
     Dates: start: 20040512, end: 20040802
  4. RADIATION [Suspect]
     Dosage: 60 GY OVER 6 WEEKS BETWEEN DAYS 43-50
     Dates: start: 20040512, end: 20040809

REACTIONS (2)
  - ARTHRALGIA [None]
  - SPINAL OSTEOARTHRITIS [None]
